FAERS Safety Report 6664464-5 (Version None)
Quarter: 2010Q2

REPORT INFORMATION
  Report Type: 
  Country: None (occurrence: None)
  Receive Date: 20100401
  Receipt Date: 20100329
  Transmission Date: 20101027
  Serious: Yes (Death, Hospitalization)
  Sender: FDA-Public Use
  Company Number: IN-ELI_LILLY_AND_COMPANY-IN201003008540

PATIENT
  Age: 39 Year
  Sex: Male

DRUGS (3)
  1. XIGRIS [Suspect]
     Indication: SEPSIS
     Dosage: UNK, UNKNOWN
     Route: 042
     Dates: start: 20100324, end: 20100326
  2. ANTIBIOTICS [Concomitant]
  3. OXYGEN [Concomitant]

REACTIONS (3)
  - DEATH [None]
  - HAEMORRHAGE [None]
  - MOUTH HAEMORRHAGE [None]
